FAERS Safety Report 10872254 (Version 1)
Quarter: 2015Q1

REPORT INFORMATION
  Report Type: Spontaneous
  Country: US (occurrence: None)
  Receive Date: 20150220
  Receipt Date: 20150220
  Transmission Date: 20150721
  Serious: Yes (Hospitalization)
  Sender: FDA-Public Use
  Company Number: None

PATIENT
  Age: 57 Year
  Sex: Male

DRUGS (2)
  1. NEXAVAR [Suspect]
     Active Substance: SORAFENIB
     Indication: THYROID CANCER
     Route: 048
     Dates: start: 20150107, end: 20150212
  2. NEXAVAR [Suspect]
     Active Substance: SORAFENIB
     Indication: HEPATIC CANCER
     Route: 048
     Dates: start: 20150107, end: 20150212

REACTIONS (5)
  - Dizziness [None]
  - Hypotension [None]
  - Liver function test abnormal [None]
  - Asthenia [None]
  - Dehydration [None]

NARRATIVE: CASE EVENT DATE: 20150212
